FAERS Safety Report 6897427-5 (Version None)
Quarter: 2010Q3

REPORT INFORMATION
  Report Type: 
  Country: None (occurrence: None)
  Receive Date: 20100802
  Receipt Date: 20070510
  Transmission Date: 20110219
  Serious: No
  Sender: FDA-Public Use
  Company Number: US-PFIZER INC-2007038868

PATIENT
  Sex: Male
  Weight: 84 kg

DRUGS (3)
  1. LYRICA [Suspect]
     Indication: NEUROPATHY PERIPHERAL
     Dates: start: 20070401
  2. ZYPREXA [Concomitant]
  3. LORAZEPAM [Concomitant]

REACTIONS (1)
  - ERYTHEMA [None]
